FAERS Safety Report 21482618 (Version 1)
Quarter: 2022Q4

REPORT INFORMATION
  Report Type: Spontaneous
  Country: US (occurrence: US)
  Receive Date: 20221020
  Receipt Date: 20221020
  Transmission Date: 20230112
  Serious: No
  Sender: FDA-Public Use
  Company Number: US-ALLERGAN-2210321US

PATIENT
  Sex: Female
  Weight: 67.131 kg

DRUGS (3)
  1. LINZESS [Suspect]
     Active Substance: LINACLOTIDE
     Indication: Constipation
     Dosage: ACTUAL: 145 ?G, QAM; ONCE IN THE MORNING 30 MINUTES PRIOR TO BREAKFAST
     Route: 048
     Dates: start: 20220228
  2. UNSPECIFIED INGREDIENT [Concomitant]
     Active Substance: UNSPECIFIED INGREDIENT
  3. UNSPECIFIED INGREDIENT [Concomitant]
     Active Substance: UNSPECIFIED INGREDIENT
     Indication: Diverticulitis

REACTIONS (6)
  - Abdominal discomfort [Recovering/Resolving]
  - Dyspepsia [Not Recovered/Not Resolved]
  - Back pain [Recovering/Resolving]
  - Condition aggravated [Recovering/Resolving]
  - Arthralgia [Not Recovered/Not Resolved]
  - Mucosa vesicle [Recovering/Resolving]

NARRATIVE: CASE EVENT DATE: 20220301
